FAERS Safety Report 5643655-6 (Version None)
Quarter: 2008Q1

REPORT INFORMATION
  Report Type: 
  Country: None (occurrence: None)
  Receive Date: 20080228
  Receipt Date: 20080220
  Transmission Date: 20080703
  Serious: Yes (Life-Threatening, Hospitalization)
  Sender: FDA-Public Use
  Company Number: FR-PFIZER INC-2008015492

PATIENT
  Age: 39 Year
  Sex: Female

DRUGS (2)
  1. ATARAX [Suspect]
     Indication: DEPRESSION
     Dosage: DAILY DOSE:300MG
     Route: 048
  2. ATARAX [Suspect]
     Dosage: DAILY DOSE:9GRAM
     Route: 048
     Dates: start: 20080213, end: 20080213

REACTIONS (7)
  - DRY EYE [None]
  - ELECTROCARDIOGRAM QRS COMPLEX PROLONGED [None]
  - HYPERTHERMIA [None]
  - OVERDOSE [None]
  - STATUS EPILEPTICUS [None]
  - SUICIDE ATTEMPT [None]
  - TACHYCARDIA [None]
